FAERS Safety Report 4667308-6 (Version None)
Quarter: 2005Q2

REPORT INFORMATION
  Report Type: 
  Country: None (occurrence: None)
  Receive Date: 20050520
  Receipt Date: 20040917
  Transmission Date: 20051028
  Serious: Yes (Disabling, Other)
  Sender: FDA-Public Use
  Company Number: PHEH2004US10063

PATIENT
  Age: 66 Year
  Sex: Female
  Weight: 71 kg

DRUGS (6)
  1. ZOMETA [Suspect]
     Indication: MULTIPLE MYELOMA
     Dosage: 4 MG, QMO
     Route: 042
     Dates: start: 20031201, end: 20040601
  2. EPOGEN [Concomitant]
     Indication: ANAEMIA
     Dosage: 40000 UNITS QWK
     Dates: end: 20040701
  3. PULSEDEX [Concomitant]
     Dosage: 40MG X4DAYS/4 DAYS ON-4 DAYS OFF
     Dates: start: 20031201, end: 20031218
  4. ASPIRIN [Concomitant]
     Dosage: 81 MG, QD
  5. PROTONIX [Concomitant]
     Indication: REFLUX OESOPHAGITIS
     Dosage: 40 MG, QD
  6. VELCADE [Concomitant]
     Indication: MULTIPLE MYELOMA
     Dosage: UNK, UNK
     Dates: start: 20040601, end: 20040801

REACTIONS (6)
  - BONE DEBRIDEMENT [None]
  - BONE DISORDER [None]
  - LOCALISED INFECTION [None]
  - OSTEONECROSIS [None]
  - PAIN IN JAW [None]
  - TOOTH DISORDER [None]
